FAERS Safety Report 25248520 (Version 2)
Quarter: 2025Q2

REPORT INFORMATION
  Report Type: Spontaneous
  Country: GB (occurrence: GB)
  Receive Date: 20250429
  Receipt Date: 20250530
  Transmission Date: 20250717
  Serious: Yes (Death, Hospitalization, Other)
  Sender: ALKEM
  Company Number: None

PATIENT
  Sex: Male
  Weight: 64 kg

DRUGS (2)
  1. PREGABALIN [Suspect]
     Active Substance: PREGABALIN
     Indication: Arthralgia
     Route: 065
  2. PREGABALIN [Suspect]
     Active Substance: PREGABALIN
     Dosage: 150 MILLIGRAM, BID (TWICE A DAY)
     Route: 065

REACTIONS (6)
  - Death [Fatal]
  - Cachexia [Unknown]
  - Respiratory failure [Unknown]
  - Velopharyngeal incompetence [Not Recovered/Not Resolved]
  - Pulmonary embolism [Not Recovered/Not Resolved]
  - Dyspnoea [Not Recovered/Not Resolved]

NARRATIVE: CASE EVENT DATE: 20120125
